FAERS Safety Report 4461553-0 (Version None)
Quarter: 2004Q3

REPORT INFORMATION
  Report Type: 
  Country: None (occurrence: None)
  Receive Date: 20040913
  Receipt Date: 20040519
  Transmission Date: 20050211
  Serious: Yes (Hospitalization, Other)
  Sender: FDA-Public Use
  Company Number: 04-181-0818

PATIENT
  Age: 61 Year
  Sex: Male
  Weight: 61.7 kg

DRUGS (4)
  1. PACLITAXEL [Suspect]
     Indication: NON-SMALL CELL LUNG CANCER
     Dosage: 330 MG IV OVER 3 HOURS
     Route: 042
     Dates: start: 20040505
  2. PRE MED WITH DECADRON [Concomitant]
  3. BENADRYL [Concomitant]
  4. ZANTAC [Concomitant]

REACTIONS (3)
  - CHILLS [None]
  - DYSPNOEA [None]
  - HYPOTENSION [None]
